FAERS Safety Report 5903867-0 (Version None)
Quarter: 2008Q3

REPORT INFORMATION
  Report Type: 
  Country: None (occurrence: None)
  Receive Date: 20080930
  Receipt Date: 20080918
  Transmission Date: 20090109
  Serious: Yes (Death)
  Sender: FDA-Public Use
  Company Number: FR-ELI_LILLY_AND_COMPANY-FR200808000770

PATIENT

DRUGS (1)
  1. PEMETREXED [Suspect]

REACTIONS (1)
  - MALIGNANT NEOPLASM PROGRESSION [None]
